FAERS Safety Report 19700501 (Version 1)
Quarter: 2021Q3

REPORT INFORMATION
  Report Type: Spontaneous
  Country: US (occurrence: US)
  Receive Date: 20210813
  Receipt Date: 20210813
  Transmission Date: 20211014
  Serious: No
  Sender: FDA-Public Use
  Company Number: US-B.I. PHARMACEUTICALS,INC./RIDGEFIELD-2021-BI-121323

PATIENT
  Age: 62 Year
  Sex: Male

DRUGS (2)
  1. GLIPIZIDE. [Suspect]
     Active Substance: GLIPIZIDE
     Indication: DIABETES MELLITUS
  2. TRADJENTA [Suspect]
     Active Substance: LINAGLIPTIN
     Indication: DIABETES MELLITUS
     Dosage: 10 UNITS 4 TIMES PERDAY
     Route: 058

REACTIONS (5)
  - Drug ineffective [Unknown]
  - Vertebral body replacement [Unknown]
  - Blood glucose abnormal [Unknown]
  - Glycosylated haemoglobin decreased [Unknown]
  - Orthopaedic procedure [Unknown]
